FAERS Safety Report 23134797 (Version 1)
Quarter: 2023Q4

REPORT INFORMATION
  Report Type: Spontaneous
  Country: CA (occurrence: CA)
  Receive Date: 20231101
  Receipt Date: 20231101
  Transmission Date: 20240110
  Serious: Yes (Hospitalization, Other)
  Sender: FDA-Public Use
  Company Number: CA-FreseniusKabi-FK202317157

PATIENT
  Age: 65 Year
  Sex: Female

DRUGS (1)
  1. IDACIO [Suspect]
     Active Substance: ADALIMUMAB-AACF
     Indication: Crohn^s disease
     Route: 058

REACTIONS (6)
  - Eczema [Unknown]
  - Fistula [Unknown]
  - Fistula discharge [Unknown]
  - Neck mass [Unknown]
  - Skin infection [Unknown]
  - Urinary tract infection [Unknown]
